FAERS Safety Report 7141737-3 (Version None)
Quarter: 2010Q4

REPORT INFORMATION
  Report Type: 
  Country: None (occurrence: None)
  Receive Date: 20101207
  Receipt Date: 20101115
  Transmission Date: 20110411
  Serious: Yes (Other)
  Sender: FDA-Public Use
  Company Number: US-PFIZER INC-2010152381

PATIENT
  Age: 28 Year
  Sex: Female

DRUGS (4)
  1. CHAPSTICK LIP BALM [Suspect]
     Dosage: UNK
     Route: 061
     Dates: start: 20101001
  2. SYNTHROID [Concomitant]
  3. VITAMIN D [Concomitant]
  4. FOLIC ACID [Concomitant]

REACTIONS (1)
  - COELIAC DISEASE [None]
